FAERS Safety Report 6579413-8 (Version None)
Quarter: 2010Q1

REPORT INFORMATION
  Report Type: 
  Country: None (occurrence: None)
  Receive Date: 20100212
  Receipt Date: 20100201
  Transmission Date: 20100710
  Serious: Yes (Other)
  Sender: FDA-Public Use
  Company Number: ES-BRISTOL-MYERS SQUIBB COMPANY-14957682

PATIENT
  Age: 58 Year
  Sex: Male

DRUGS (9)
  1. PACLITAXEL [Suspect]
     Indication: NON-SMALL CELL LUNG CANCER
     Dosage: DAY 1
  2. CISPLATIN [Suspect]
     Indication: NON-SMALL CELL LUNG CANCER
     Dosage: DAY 1
  3. CARBOPLATIN [Suspect]
     Indication: NON-SMALL CELL LUNG CANCER
     Dosage: 1 DOSAGEFORM = AUC6
  4. PEMETREXED DISODIUM [Suspect]
     Indication: NON-SMALL CELL LUNG CANCER
  5. OPTOVITE B12 [Suspect]
     Indication: VITAMIN SUPPLEMENTATION
     Route: 030
  6. ROCHEVIT [Suspect]
     Indication: VITAMIN SUPPLEMENTATION
     Dosage: STRENGTH CYANOCOBALAMIN 4MG + FOLIC ACID 0.4MG FORM = CAP 1 DOSAGEFORM = 1 CAP
     Route: 048
  7. DEXAMETHASONE [Suspect]
  8. SUPRADYN [Suspect]
     Indication: VITAMIN SUPPLEMENTATION
  9. RADIATION THERAPY [Suspect]
     Indication: NON-SMALL CELL LUNG CANCER
     Dosage: 60 DF= 60 GY, BETWEEN 5TH AND 6TH CYC

REACTIONS (3)
  - MALIGNANT NEOPLASM PROGRESSION [None]
  - PANCYTOPENIA [None]
  - TOXIC EPIDERMAL NECROLYSIS [None]
